FAERS Safety Report 10642055 (Version 2)
Quarter: 2015Q1

REPORT INFORMATION
  Report Type: Spontaneous
  Country: FR (occurrence: FR)
  Receive Date: 20141209
  Receipt Date: 20150214
  Transmission Date: 20150720
  Serious: Yes (Hospitalization, Other)
  Sender: FDA-Public Use
  Company Number: FR-ABBVIE-14K-056-1316698-00

PATIENT
  Age: 59 Year
  Sex: Female
  Weight: 55 kg

DRUGS (2)
  1. HUMIRA [Suspect]
     Active Substance: ADALIMUMAB
     Indication: CROHN^S DISEASE
     Route: 058
     Dates: start: 201405, end: 201411
  2. METHOTREXATE [Concomitant]
     Active Substance: METHOTREXATE
     Indication: CROHN^S DISEASE
     Route: 065
     Dates: end: 2014

REACTIONS (17)
  - Face oedema [Unknown]
  - Anaemia [Unknown]
  - Dyspnoea [Unknown]
  - Hypokalaemia [Unknown]
  - Lymphadenopathy mediastinal [Not Recovered/Not Resolved]
  - Mediastinum neoplasm [Not Recovered/Not Resolved]
  - Collateral circulation [Unknown]
  - Hepatic cyst [Unknown]
  - Iron deficiency [Unknown]
  - Oedema peripheral [Unknown]
  - Bronchial carcinoma [Not Recovered/Not Resolved]
  - Encephalomalacia [Unknown]
  - Oxygen saturation decreased [Unknown]
  - Bronchial carcinoma [Unknown]
  - Superior vena cava syndrome [Not Recovered/Not Resolved]
  - Diarrhoea [Unknown]
  - Serum ferritin decreased [Unknown]

NARRATIVE: CASE EVENT DATE: 2014
